FAERS Safety Report 22233778 (Version 1)
Quarter: 2023Q2

REPORT INFORMATION
  Report Type: Spontaneous
  Country: US (occurrence: US)
  Receive Date: 20230420
  Receipt Date: 20230420
  Transmission Date: 20230722
  Serious: Yes (Other)
  Sender: FDA-Public Use
  Company Number: US-VERTEX PHARMACEUTICALS-2023-005585

PATIENT

DRUGS (1)
  1. TRIKAFTA [Suspect]
     Active Substance: ELEXACAFTOR\IVACAFTOR\TEZACAFTOR
     Indication: Cystic fibrosis
     Dosage: UNK FREQ
     Route: 048
     Dates: start: 2022

REACTIONS (13)
  - Hepatitis [Recovering/Resolving]
  - Hepatic pain [Recovering/Resolving]
  - Feeling abnormal [Recovering/Resolving]
  - Pulmonary sarcoidosis [Unknown]
  - Gastrointestinal disorder [Unknown]
  - Dyspnoea [Unknown]
  - Weight decreased [Recovering/Resolving]
  - Sinus disorder [Unknown]
  - Ear pain [Unknown]
  - Joint stiffness [Unknown]
  - Dry eye [Unknown]
  - Urinary tract infection [Recovering/Resolving]
  - Hepatic enzyme increased [Recovering/Resolving]

NARRATIVE: CASE EVENT DATE: 20220101
